FAERS Safety Report 9644196 (Version 1)
Quarter: 2013Q4

REPORT INFORMATION
  Report Type: Report from Study
  Country: US (occurrence: US)
  Receive Date: 20131024
  Receipt Date: 20131024
  Transmission Date: 20140711
  Serious: Yes (Hospitalization, Other)
  Sender: FDA-Public Use
  Company Number: US-ABBVIE-13P-163-1158800-00

PATIENT
  Age: 60 Year
  Sex: Female
  Weight: 85.81 kg

DRUGS (10)
  1. HUMIRA [Suspect]
     Indication: RHEUMATOID ARTHRITIS
     Route: 058
     Dates: start: 201302
  2. HUMIRA [Suspect]
     Route: 058
  3. MORPHINE [Suspect]
     Indication: FIBROMYALGIA
     Dates: start: 201309, end: 201309
  4. MORPHINE [Suspect]
     Indication: NERVE COMPRESSION
  5. MOBIC [Suspect]
     Indication: PRODUCT USED FOR UNKNOWN INDICATION
  6. EXCEDRINE [Concomitant]
     Indication: HEADACHE
  7. NORCO [Concomitant]
     Indication: PAIN
  8. VITAMIN B12 [Concomitant]
     Indication: ANAEMIA
     Route: 050
  9. CYMBALTA [Concomitant]
     Indication: FIBROMYALGIA
  10. IRON [Concomitant]
     Indication: PRODUCT USED FOR UNKNOWN INDICATION
     Dosage: EVERY 1-2 YEARS

REACTIONS (4)
  - Loss of consciousness [Recovered/Resolved]
  - Renal impairment [Recovering/Resolving]
  - Incorrect dose administered [Unknown]
  - Dehydration [Recovered/Resolved]
